FAERS Safety Report 15010464 (Version 1)
Quarter: 2018Q2

REPORT INFORMATION
  Report Type: Spontaneous
  Country: US (occurrence: US)
  Receive Date: 20180521
  Receipt Date: 20180521
  Transmission Date: 20180711
  Serious: No
  Sender: FDA-Public Use
  Company Number: None

PATIENT
  Age: 46 Year
  Sex: Female

DRUGS (17)
  1. DOCUSATE [Concomitant]
     Active Substance: DOCUSATE
  2. FENTANYL. [Concomitant]
     Active Substance: FENTANYL
  3. METHADONE [Concomitant]
     Active Substance: METHADONE HYDROCHLORIDE
  4. SENNA [Concomitant]
     Active Substance: SENNA LEAF\SENNOSIDES\SENNOSIDES A AND B
  5. LEVOFLOXACIN. [Suspect]
     Active Substance: LEVOFLOXACIN
     Indication: BACTERAEMIA
     Route: 042
     Dates: start: 20180105, end: 20180110
  6. ENOXAPARIN [Concomitant]
     Active Substance: ENOXAPARIN
  7. FOLIC ACID. [Concomitant]
     Active Substance: FOLIC ACID
  8. MIDAZOLAM [Concomitant]
     Active Substance: MIDAZOLAM HYDROCHLORIDE
  9. LANSOPRAZOLE. [Concomitant]
     Active Substance: LANSOPRAZOLE
  10. AMLODIPINE [Concomitant]
     Active Substance: AMLODIPINE BESYLATE
  11. HEPARIN [Concomitant]
     Active Substance: HEPARIN SODIUM
  12. CLONIDINE. [Concomitant]
     Active Substance: CLONIDINE
  13. HYDROMORPHONE [Concomitant]
     Active Substance: HYDROMORPHONE
  14. ACETAMINOPHEN. [Concomitant]
     Active Substance: ACETAMINOPHEN
  15. LIDOCAINE. [Concomitant]
     Active Substance: LIDOCAINE
  16. OXYBUTYNIN. [Concomitant]
     Active Substance: OXYBUTYNIN CHLORIDE
  17. OXYCODONE [Concomitant]
     Active Substance: OXYCODONE

REACTIONS (2)
  - Tendon pain [None]
  - Tendon disorder [None]

NARRATIVE: CASE EVENT DATE: 20180110
